FAERS Safety Report 17960600 (Version 2)
Quarter: 2021Q3

REPORT INFORMATION
  Report Type: Spontaneous
  Country: US (occurrence: US)
  Receive Date: 20200629
  Receipt Date: 20210728
  Transmission Date: 20211014
  Serious: No
  Sender: FDA-Public Use
  Company Number: US-ROCHE-2528633

PATIENT
  Age: 69 Year
  Sex: Female

DRUGS (2)
  1. XELODA [Suspect]
     Active Substance: CAPECITABINE
     Route: 048
     Dates: start: 20190101
  2. XELODA [Suspect]
     Active Substance: CAPECITABINE
     Indication: PRODUCT USED FOR UNKNOWN INDICATION
     Route: 048
     Dates: start: 20191226

REACTIONS (20)
  - Constipation [Unknown]
  - Tongue discolouration [Unknown]
  - Periorbital swelling [Unknown]
  - Diarrhoea [Unknown]
  - Palmar-plantar erythrodysaesthesia syndrome [Unknown]
  - Madarosis [Unknown]
  - Alopecia [Unknown]
  - Stomatitis [Unknown]
  - Fatigue [Unknown]
  - White blood cell count decreased [Unknown]
  - Ageusia [Unknown]
  - Ocular hyperaemia [Unknown]
  - Erythema [Unknown]
  - Skin exfoliation [Unknown]
  - Vision blurred [Unknown]
  - Dysgeusia [Unknown]
  - Weight decreased [Unknown]
  - Skin discolouration [Unknown]
  - Eye swelling [Unknown]
  - Visual impairment [Unknown]

NARRATIVE: CASE EVENT DATE: 20200210
